FAERS Safety Report 5237085-9 (Version None)
Quarter: 2007Q1

REPORT INFORMATION
  Report Type: 
  Country: None (occurrence: None)
  Receive Date: 20070213
  Receipt Date: 20070129
  Transmission Date: 20070707
  Serious: Yes (Hospitalization, Disabling, Other)
  Sender: FDA-Public Use
  Company Number: US-AMGEN-KDL186971

PATIENT
  Sex: Female

DRUGS (13)
  1. ENBREL [Suspect]
     Indication: PSORIASIS
     Route: 058
     Dates: start: 20030717
  2. HYDROCODONE [Concomitant]
  3. FLURAZEPAM HCL [Concomitant]
  4. TRAMADOL HCL [Concomitant]
  5. TIZANIDINE HCL [Concomitant]
  6. POTASSIUM CHLORIDE [Concomitant]
  7. FUROSEMIDE [Concomitant]
  8. LISINOPRIL [Concomitant]
     Route: 048
  9. DOVONEX [Concomitant]
     Route: 061
  10. LASIX [Concomitant]
  11. VITAMIN B-12 [Concomitant]
  12. CYANOCOBALAMIN [Concomitant]
  13. DURAGESIC-100 [Concomitant]
     Route: 061

REACTIONS (11)
  - ARACHNOIDITIS [None]
  - FUNGAL SKIN INFECTION [None]
  - INTERVERTEBRAL DISC PROTRUSION [None]
  - INTRACRANIAL HYPOTENSION [None]
  - LUMBAR SPINAL STENOSIS [None]
  - MULTIPLE SCLEROSIS [None]
  - NERVE COMPRESSION [None]
  - POSTOPERATIVE WOUND INFECTION [None]
  - PSORIASIS [None]
  - SPONDYLOLISTHESIS [None]
  - WHEELCHAIR USER [None]
